FAERS Safety Report 16819022 (Version 5)
Quarter: 2020Q1

REPORT INFORMATION
  Report Type: Report from Study
  Country: CA (occurrence: CA)
  Receive Date: 20190917
  Receipt Date: 20200128
  Transmission Date: 20200409
  Serious: Yes (Other)
  Sender: FDA-Public Use
  Company Number: CA-JNJFOC-20190911805

PATIENT
  Sex: Male
  Weight: 100.9 kg

DRUGS (3)
  1. METHOTREXATE. [Concomitant]
     Active Substance: METHOTREXATE
     Route: 048
  2. REMICADE [Suspect]
     Active Substance: INFLIXIMAB
     Indication: CROHN^S DISEASE
     Route: 042
     Dates: start: 20100506
  3. REMICADE [Suspect]
     Active Substance: INFLIXIMAB
     Indication: ANKYLOSING SPONDYLITIS
     Dosage: RECEIVED A DOSE ON 01-JAN-2006, 06-MAY-2010
     Route: 042
     Dates: start: 2005

REACTIONS (3)
  - Circumcision [Unknown]
  - Lung neoplasm malignant [Unknown]
  - Intestinal ulcer [Unknown]
